FAERS Safety Report 8790635 (Version 1)
Quarter: 2012Q4

REPORT INFORMATION
  Report Type: Spontaneous
  Country: US (occurrence: None)
  Receive Date: 20120912
  Receipt Date: 20120912
  Transmission Date: 20130627
  Serious: Yes (Death)
  Sender: FDA-Public Use
  Company Number: None

PATIENT
  Age: 76 Year
  Sex: Male
  Weight: 78.93 kg

DRUGS (1)
  1. SORAFENIB [Suspect]
     Indication: CARCINOMA HEPATOCELLULAR
     Dosage: 6/15 or 6/21 to 7/12
     Route: 048

REACTIONS (1)
  - Hepatic failure [None]
